FAERS Safety Report 4510019-8 (Version None)
Quarter: 2004Q4

REPORT INFORMATION
  Report Type: 
  Country: None (occurrence: None)
  Receive Date: 20041119
  Receipt Date: 20041116
  Transmission Date: 20050328
  Serious: Yes (Hospitalization)
  Sender: FDA-Public Use
  Company Number: 200413093GDS

PATIENT
  Age: 73 Year
  Sex: Male
  Weight: 56 kg

DRUGS (5)
  1. ASPIRIN [Suspect]
     Indication: CARDIAC DISORDER
     Dosage: 100 MG, QD, ORAL
     Route: 048
  2. MOBIC [Suspect]
     Indication: PAIN
     Dosage: 7.5 MG, BID, ORAL
     Route: 048
     Dates: end: 20040201
  3. LISINOPRIL [Suspect]
     Indication: HYPERTENSION
     Dosage: ORAL
     Route: 048
     Dates: start: 20030504
  4. NEXIUM [Suspect]
     Indication: GASTRIC ULCER
     Dosage: ORAL
     Route: 048
     Dates: start: 20040101
  5. ZESTORETIC [Suspect]
     Dates: start: 20030101, end: 20040501

REACTIONS (4)
  - ALVEOLITIS [None]
  - DYSPNOEA [None]
  - EOSINOPHILIA [None]
  - RESPIRATORY DISTRESS [None]
